FAERS Safety Report 16223732 (Version 2)
Quarter: 2019Q2

REPORT INFORMATION
  Report Type: Spontaneous
  Country: DK (occurrence: DK)
  Receive Date: 20190422
  Receipt Date: 20190423
  Transmission Date: 20190711
  Serious: Yes (Other)
  Sender: FDA-Public Use
  Company Number: DK-ABBVIE-19K-044-2748977-00

PATIENT
  Age: 50 Year
  Sex: Female
  Weight: 60 kg

DRUGS (3)
  1. IMRALDI [Suspect]
     Active Substance: ADALIMUMAB
     Indication: RHEUMATOID ARTHRITIS
     Dosage: STYRKE: 40 MG
     Route: 065
     Dates: start: 201902
  2. HUMIRA [Suspect]
     Active Substance: ADALIMUMAB
     Indication: RHEUMATOID ARTHRITIS
     Route: 058
     Dates: start: 2011, end: 201902
  3. METEX [Concomitant]
     Indication: RHEUMATOID ARTHRITIS
     Dosage: STYRKE: 15 MG.
     Dates: start: 2010

REACTIONS (3)
  - Keratitis [Recovered/Resolved]
  - Keratitis [Not Recovered/Not Resolved]
  - Iridocyclitis [Recovered/Resolved]

NARRATIVE: CASE EVENT DATE: 20190307
